FAERS Safety Report 8409635-2 (Version None)
Quarter: 2012Q2

REPORT INFORMATION
  Report Type: 
  Country: None (occurrence: None)
  Receive Date: 20120531
  Receipt Date: 20120531
  Transmission Date: 20120825
  Serious: Yes (Other)
  Sender: FDA-Public Use
  Company Number: None

PATIENT
  Age: 79 Year
  Sex: Female
  Weight: 58.0604 kg

DRUGS (1)
  1. CARTIA XT [Suspect]
     Indication: ARRHYTHMIA
     Dosage: 1 - ONE TWICE A DAY
     Dates: start: 20120213, end: 20120217

REACTIONS (6)
  - DIZZINESS [None]
  - PAIN [None]
  - PRODUCT SUBSTITUTION ISSUE [None]
  - MUSCULAR WEAKNESS [None]
  - DYSPNOEA [None]
  - ARRHYTHMIA [None]
